FAERS Safety Report 10109355 (Version 1)
Quarter: 2014Q2

REPORT INFORMATION
  Report Type: Spontaneous
  Country: US (occurrence: None)
  Receive Date: 20140424
  Receipt Date: 20140424
  Transmission Date: 20141212
  Serious: Yes (Life-Threatening, Disabling)
  Sender: FDA-Public Use
  Company Number: None

PATIENT
  Age: 51 Year
  Sex: Female
  Weight: 122.47 kg

DRUGS (1)
  1. BENICAR HCT [Suspect]
     Indication: HYPERTENSION
     Dosage: ONCE
     Route: 048
     Dates: start: 20050301, end: 20140328

REACTIONS (16)
  - Diarrhoea [None]
  - Rash [None]
  - Granuloma annulare [None]
  - Asthma [None]
  - Choking [None]
  - Pruritus generalised [None]
  - Cystitis interstitial [None]
  - Eye swelling [None]
  - Arthritis [None]
  - Bone pain [None]
  - Arthralgia [None]
  - Gait disturbance [None]
  - Food allergy [None]
  - Gastrointestinal disorder [None]
  - Faecal incontinence [None]
  - Social problem [None]
